FAERS Safety Report 9782841 (Version 1)
Quarter: 2013Q4

REPORT INFORMATION
  Report Type: Spontaneous
  Country: US (occurrence: US)
  Receive Date: 20131226
  Receipt Date: 20131226
  Transmission Date: 20140711
  Serious: No
  Sender: FDA-Public Use
  Company Number: US-ABBVIE-13P-163-1133242-00

PATIENT
  Age: 60 Year
  Sex: Male

DRUGS (7)
  1. LUPRON DEPOT [Suspect]
     Indication: PROSTATE CANCER
     Route: 030
     Dates: start: 20130805
  2. CASODEX [Suspect]
     Indication: PROSTATE CANCER
     Dates: start: 20130708
  3. FIRMAGON [Concomitant]
     Indication: PROSTATE CANCER
     Dates: start: 20130708, end: 20130708
  4. CELEBREX [Concomitant]
     Indication: PRODUCT USED FOR UNKNOWN INDICATION
  5. TERAZOSIN [Concomitant]
     Indication: PRODUCT USED FOR UNKNOWN INDICATION
  6. PREDNISONE [Concomitant]
     Indication: PRODUCT USED FOR UNKNOWN INDICATION
  7. EXTERNAL RADIATION [Concomitant]
     Indication: PROSTATE CANCER
     Dates: start: 201307, end: 201307

REACTIONS (2)
  - Arthralgia [Not Recovered/Not Resolved]
  - Musculoskeletal discomfort [Not Recovered/Not Resolved]
